FAERS Safety Report 5167825-9 (Version None)
Quarter: 2006Q4

REPORT INFORMATION
  Report Type: 
  Country: None (occurrence: None)
  Receive Date: 20061208
  Receipt Date: 20061004
  Transmission Date: 20070319
  Serious: Yes (Other)
  Sender: FDA-Public Use
  Company Number: JP-AVENTIS-200613045JP

PATIENT
  Age: 57 Year
  Sex: Female
  Weight: 60 kg

DRUGS (3)
  1. TAXOTERE [Suspect]
     Indication: BREAST CANCER
     Route: 041
     Dates: start: 20060907, end: 20060928
  2. HERCEPTIN [Concomitant]
     Indication: BREAST CANCER
     Route: 041
     Dates: start: 20060803, end: 20060928
  3. DECADRON [Concomitant]
     Indication: PREMEDICATION
     Dates: start: 20060907, end: 20060928

REACTIONS (4)
  - METASTASES TO CENTRAL NERVOUS SYSTEM [None]
  - NEUTROPENIA [None]
  - PALMAR-PLANTAR ERYTHRODYSAESTHESIA SYNDROME [None]
  - VENTRICULAR TACHYCARDIA [None]
